FAERS Safety Report 22150222 (Version 1)
Quarter: 2023Q1

REPORT INFORMATION
  Report Type: Spontaneous
  Country: US (occurrence: US)
  Receive Date: 20230329
  Receipt Date: 20230329
  Transmission Date: 20230417
  Serious: Yes (Other)
  Sender: FDA-Public Use
  Company Number: US-ORGANON-O2303USA002484

PATIENT
  Age: 36 Year
  Sex: Female
  Weight: 150.11 kg

DRUGS (1)
  1. NEXPLANON [Suspect]
     Active Substance: ETONOGESTREL
     Indication: Contraception
     Dosage: 1 IMPLANT OF 68 MG, ONCE IN LEFT ARM (HALF IMPLANT WAS REMOVED ON 23-MAR-2023)
     Route: 059
     Dates: start: 20210222

REACTIONS (6)
  - Device dislocation [Not Recovered/Not Resolved]
  - Device breakage [Not Recovered/Not Resolved]
  - Complication associated with device [Not Recovered/Not Resolved]
  - Complication of device removal [Not Recovered/Not Resolved]
  - Menstruation irregular [Unknown]
  - Implant site fibrosis [Unknown]

NARRATIVE: CASE EVENT DATE: 20230323
